FAERS Safety Report 5577790-8 (Version None)
Quarter: 2007Q4

REPORT INFORMATION
  Report Type: 
  Country: None (occurrence: None)
  Receive Date: 20071227
  Receipt Date: 20071210
  Transmission Date: 20080405
  Serious: Yes (Hospitalization)
  Sender: FDA-Public Use
  Company Number: 02100-JPN-07-0694

PATIENT
  Age: 65 Year
  Sex: Male

DRUGS (11)
  1. CILOSTAZOL [Suspect]
     Indication: ANGIOPATHY
     Dosage: 200 MG
     Route: 048
     Dates: start: 20051205, end: 20071205
  2. CALCIUM ACETATE [Concomitant]
  3. LISINOPRIL [Concomitant]
  4. CALCIUM DOBESILATE [Concomitant]
  5. CARVEDILOL [Concomitant]
  6. DOXAZOCIN [Concomitant]
  7. EPROSARTAN [Concomitant]
  8. TRESTA [Concomitant]
  9. SIMVASTATIN [Concomitant]
  10. REBAMIPIDE [Concomitant]
  11. HEMOCONTIN [Concomitant]

REACTIONS (7)
  - AZOTAEMIA [None]
  - DIABETIC NEPHROPATHY [None]
  - GASTRITIS EROSIVE [None]
  - GASTRITIS HAEMORRHAGIC [None]
  - HAEMODIALYSIS [None]
  - OEDEMA PERIPHERAL [None]
  - WEIGHT INCREASED [None]
